FAERS Safety Report 5958982-2 (Version None)
Quarter: 2008Q4

REPORT INFORMATION
  Report Type: 
  Country: None (occurrence: None)
  Receive Date: 20081117
  Receipt Date: 20081112
  Transmission Date: 20090506
  Serious: Yes (Death)
  Sender: FDA-Public Use
  Company Number: CERZ-1000418

PATIENT
  Age: 25 Year
  Sex: Female

DRUGS (1)
  1. CEREZYME [Suspect]
     Indication: GAUCHER'S DISEASE
     Dates: start: 20070309, end: 20081001

REACTIONS (2)
  - ACCIDENTAL DEATH [None]
  - GUN SHOT WOUND [None]
